FAERS Safety Report 6462092-8 (Version None)
Quarter: 2009Q4

REPORT INFORMATION
  Report Type: 
  Country: None (occurrence: None)
  Receive Date: 20091130
  Receipt Date: 20091117
  Transmission Date: 20100525
  Serious: Yes (Other)
  Sender: FDA-Public Use
  Company Number: CHPA2009IN22261

PATIENT
  Sex: Male

DRUGS (1)
  1. OTRIVEN (NCH) [Suspect]
     Indication: NASAL CONGESTION
     Route: 045

REACTIONS (3)
  - CARDIAC DISORDER [None]
  - DRUG DEPENDENCE [None]
  - INTENTIONAL DRUG MISUSE [None]
